FAERS Safety Report 22093215 (Version 1)
Quarter: 2023Q1

REPORT INFORMATION
  Report Type: Spontaneous
  Country: US (occurrence: None)
  Receive Date: 20230314
  Receipt Date: 20230314
  Transmission Date: 20230418
  Serious: No
  Sender: FDA-Public Use
  Company Number: None

PATIENT
  Sex: Female

DRUGS (1)
  1. RINVOQ [Suspect]
     Active Substance: UPADACITINIB
     Dosage: FREQUENCY : DAILY;?
     Route: 048
     Dates: start: 202209

REACTIONS (10)
  - Drug ineffective [None]
  - Joint swelling [None]
  - Arthralgia [None]
  - Neck pain [None]
  - Pain [None]
  - Pain in extremity [None]
  - Hypoaesthesia [None]
  - Pain [None]
  - Mobility decreased [None]
  - Condition aggravated [None]
